FAERS Safety Report 24956953 (Version 2)
Quarter: 2025Q1

REPORT INFORMATION
  Report Type: Spontaneous
  Country: GB (occurrence: GB)
  Receive Date: 20250211
  Receipt Date: 20250212
  Transmission Date: 20250409
  Serious: Yes (Other)
  Sender: PFIZER
  Company Number: GB-PFIZER INC-PV202500015876

PATIENT
  Age: 20 Year
  Sex: Female
  Weight: 60.75 kg

DRUGS (2)
  1. DOXYCYCLINE [Suspect]
     Active Substance: DOXYCYCLINE
     Indication: Acne
     Dosage: 1 DF, DAILY
     Dates: start: 20190225, end: 20190303
  2. AZELAIC ACID [Concomitant]
     Active Substance: AZELAIC ACID
     Dosage: 20% APPLIED TO SKIN TWICE DAILY

REACTIONS (3)
  - Suicidal ideation [Recovered/Resolved]
  - Mood swings [Recovered/Resolved]
  - Depression [Recovered/Resolved]

NARRATIVE: CASE EVENT DATE: 20190101
